FAERS Safety Report 14358449 (Version 1)
Quarter: 2018Q1

REPORT INFORMATION
  Report Type: Spontaneous
  Country: US (occurrence: US)
  Receive Date: 20180105
  Receipt Date: 20180105
  Transmission Date: 20180509
  Serious: No
  Sender: FDA-Public Use
  Company Number: US-SA-2017SA225523

PATIENT
  Age: 31 Year
  Sex: Female
  Weight: 108.86 kg

DRUGS (4)
  1. FAMOTIDINE. [Concomitant]
     Active Substance: FAMOTIDINE
  2. PANTOPRAZOLE SODIUM. [Concomitant]
     Active Substance: PANTOPRAZOLE SODIUM
  3. VENTOLINE [Concomitant]
     Active Substance: ALBUTEROL
  4. DUPIXENT [Suspect]
     Active Substance: DUPILUMAB
     Indication: DERMATITIS ATOPIC
     Route: 058
     Dates: start: 20170901

REACTIONS (2)
  - Product use issue [Unknown]
  - Dry mouth [Unknown]

NARRATIVE: CASE EVENT DATE: 20170901
